FAERS Safety Report 16877670 (Version 1)
Quarter: 2019Q4

REPORT INFORMATION
  Report Type: Spontaneous
  Country: US (occurrence: US)
  Receive Date: 20191002
  Receipt Date: 20191002
  Transmission Date: 20200122
  Serious: No
  Sender: FDA-Public Use
  Company Number: US-BAYER-2019-178630

PATIENT
  Age: 55 Year
  Sex: Female

DRUGS (3)
  1. ACETYLSALICYLIC ACID (PAIN AND FEVER) [Suspect]
     Active Substance: ASPIRIN
     Dosage: UNK
  2. CIPRO [Suspect]
     Active Substance: CIPROFLOXACIN HYDROCHLORIDE
     Dosage: UNK
  3. SOTALOL. [Interacting]
     Active Substance: SOTALOL
     Dosage: UNK

REACTIONS (2)
  - Drug hypersensitivity [None]
  - Drug interaction [None]
